FAERS Safety Report 16272288 (Version 1)
Quarter: 2019Q2

REPORT INFORMATION
  Report Type: Spontaneous
  Country: GB (occurrence: GB)
  Receive Date: 20190506
  Receipt Date: 20190506
  Transmission Date: 20190711
  Serious: Yes (Death, Hospitalization)
  Sender: FDA-Public Use
  Company Number: GB-TEVA-2019-GB-1046002

PATIENT
  Age: 72 Year
  Sex: Female

DRUGS (2)
  1. THYROXINE [Concomitant]
     Active Substance: LEVOTHYROXINE
     Indication: THYROIDECTOMY
     Route: 048
     Dates: start: 1994
  2. ATORVASTATIN [Suspect]
     Active Substance: ATORVASTATIN
     Indication: HYPERCHOLESTEROLAEMIA
     Route: 048
     Dates: start: 201802

REACTIONS (3)
  - Immune-mediated necrotising myopathy [Fatal]
  - Asthenia [Fatal]
  - Dysphagia [Fatal]

NARRATIVE: CASE EVENT DATE: 201802
